FAERS Safety Report 26012417 (Version 1)
Quarter: 2025Q4

REPORT INFORMATION
  Report Type: Spontaneous
  Country: AU (occurrence: AU)
  Receive Date: 20251107
  Receipt Date: 20251107
  Transmission Date: 20260118
  Serious: Yes (Death, Other)
  Sender: AMGEN
  Company Number: AU-AMGEN-AUSSP2025218798

PATIENT

DRUGS (1)
  1. BEVACIZUMAB [Suspect]
     Active Substance: BEVACIZUMAB
     Indication: Adenocarcinoma of appendix
     Dosage: UNK
     Route: 065

REACTIONS (4)
  - Death [Fatal]
  - Adenocarcinoma of appendix [Unknown]
  - Therapy partial responder [Unknown]
  - Off label use [Unknown]
